FAERS Safety Report 9499114 (Version 1)
Quarter: 2013Q3

REPORT INFORMATION
  Report Type: Spontaneous
  Country: JP (occurrence: JP)
  Receive Date: 20130904
  Receipt Date: 20130904
  Transmission Date: 20140515
  Serious: Yes (Other)
  Sender: FDA-Public Use
  Company Number: JP-B.I. PHARMACEUTICALS,INC./RIDGEFIELD-2013-BI-27232YA

PATIENT
  Age: 88 Year
  Sex: Male

DRUGS (4)
  1. HARNAL (TAMSULOSIN) ORODISPERSABLE CR [Suspect]
     Indication: BENIGN PROSTATIC HYPERPLASIA
     Dosage: 0.2 MG
     Route: 048
  2. VESICARE (SOLIFENACIN) [Suspect]
     Indication: INCONTINENCE
     Route: 048
     Dates: start: 2013, end: 2013
  3. BETANIS [Suspect]
     Indication: INCONTINENCE
     Route: 048
     Dates: start: 2013
  4. INJECTION FOR PROSTATE CANCER [Concomitant]
     Indication: PROSTATE CANCER
     Dosage: FORMULATION: INJECTION
     Dates: end: 2012

REACTIONS (3)
  - Urinary retention [Unknown]
  - Hot flush [Unknown]
  - Incontinence [Not Recovered/Not Resolved]
